FAERS Safety Report 9645499 (Version 1)
Quarter: 2013Q4

REPORT INFORMATION
  Report Type: Spontaneous
  Country: GB (occurrence: GB)
  Receive Date: 20131025
  Receipt Date: 20131025
  Transmission Date: 20140711
  Serious: Yes (Hospitalization)
  Sender: FDA-Public Use
  Company Number: GB-009507513-1310GBR009086

PATIENT
  Sex: Male

DRUGS (2)
  1. REBETOL [Suspect]
     Dosage: UNKNOWN
     Route: 048
  2. INTRONA [Suspect]
     Dosage: UNKNOWN

REACTIONS (1)
  - Psychotic disorder [Unknown]
